FAERS Safety Report 17568785 (Version 4)
Quarter: 2021Q3

REPORT INFORMATION
  Report Type: Report from Study
  Country: US (occurrence: US)
  Receive Date: 20200321
  Receipt Date: 20210702
  Transmission Date: 20211014
  Serious: Yes (Other)
  Sender: FDA-Public Use
  Company Number: US-AMGEN-USASP2020044731

PATIENT
  Age: 65 Year
  Sex: Male

DRUGS (7)
  1. ENBREL [Suspect]
     Active Substance: ETANERCEPT
     Dosage: 50 MILLIGRAM, QWK
     Route: 065
  2. ENBREL [Suspect]
     Active Substance: ETANERCEPT
     Dosage: 50 MILLIGRAM, QWK
     Route: 065
  3. ENBREL [Suspect]
     Active Substance: ETANERCEPT
     Dosage: 50 MILLIGRAM, QWK
     Route: 065
  4. METHOTREXATE. [Concomitant]
     Active Substance: METHOTREXATE
     Dosage: UNK
  5. ENBREL [Suspect]
     Active Substance: ETANERCEPT
     Dosage: 50 MILLIGRAM, QWK
     Route: 065
  6. ENBREL [Suspect]
     Active Substance: ETANERCEPT
     Dosage: 50 MILLIGRAM, QWK
     Route: 065
  7. ENBREL [Suspect]
     Active Substance: ETANERCEPT
     Indication: RHEUMATOID ARTHRITIS
     Dosage: 50 MILLIGRAM, QWK
     Route: 065
     Dates: start: 2018

REACTIONS (11)
  - Hypoaesthesia [Unknown]
  - Injection site haemorrhage [Unknown]
  - Feeling cold [Unknown]
  - Device power source issue [Unknown]
  - Injection site pain [Unknown]
  - Rheumatoid arthritis [Recovering/Resolving]
  - Injection site scar [Recovered/Resolved]
  - Accidental exposure to product [Unknown]
  - Device issue [Unknown]
  - Wrong technique in product usage process [Unknown]
  - Injection site extravasation [Unknown]

NARRATIVE: CASE EVENT DATE: 2018
